FAERS Safety Report 21200548 (Version 1)
Quarter: 2022Q3

REPORT INFORMATION
  Report Type: Spontaneous
  Country: CA (occurrence: CA)
  Receive Date: 20220811
  Receipt Date: 20220811
  Transmission Date: 20221027
  Serious: Yes (Hospitalization, Other)
  Sender: FDA-Public Use
  Company Number: CA-PFIZER INC-202201051033

PATIENT
  Age: 73 Year
  Sex: Female
  Weight: 77 kg

DRUGS (27)
  1. CORTEF [Suspect]
     Active Substance: HYDROCORTISONE
     Indication: Lung neoplasm malignant
     Dosage: 17.5 MG, DAILY
     Route: 048
  2. CORTEF [Suspect]
     Active Substance: HYDROCORTISONE
     Indication: Chronic obstructive pulmonary disease
  3. ASPIRIN [Concomitant]
     Active Substance: ASPIRIN
     Route: 065
  4. ATIVAN [Concomitant]
     Active Substance: LORAZEPAM
  5. BISOPROLOL [Concomitant]
     Active Substance: BISOPROLOL
     Route: 065
  6. CALCIUM\CHOLECALCIFEROL [Concomitant]
     Active Substance: CALCIUM\CHOLECALCIFEROL
  7. SULFAMETHOXAZOLE\TRIMETHOPRIM [Concomitant]
     Active Substance: SULFAMETHOXAZOLE\TRIMETHOPRIM
  8. DILAUDID [Concomitant]
     Active Substance: HYDROMORPHONE HYDROCHLORIDE
  9. FERROUS SULFATE [Concomitant]
     Active Substance: FERROUS SULFATE
  10. FLOVENT HFA [Concomitant]
     Active Substance: FLUTICASONE PROPIONATE
     Dosage: METERED-DOSE (AEROSOL)
  11. FOSAMAX [Concomitant]
     Active Substance: ALENDRONATE SODIUM
  12. IMOVANE [Concomitant]
     Active Substance: ZOPICLONE
  13. JAMP NYSTATIN [Concomitant]
  14. K-DUR [Concomitant]
     Active Substance: POTASSIUM CHLORIDE
  15. KEPPRA [Concomitant]
     Active Substance: LEVETIRACETAM
  16. LASIX [Concomitant]
     Active Substance: FUROSEMIDE
  17. METOCLOPRAMIDE HYDROCHLORIDE [Concomitant]
     Active Substance: METOCLOPRAMIDE HYDROCHLORIDE
  18. MELATONIN [Concomitant]
     Active Substance: MELATONIN
  19. NASONEX [Concomitant]
     Active Substance: MOMETASONE FUROATE
     Dosage: SPRAY, METERED-DOSE
  20. NEURONTIN [Concomitant]
     Active Substance: GABAPENTIN
  21. NITRO-DUR [Concomitant]
     Active Substance: NITROGLYCERIN
     Dosage: PATCH, EXTENDED RELEASE
  22. NITROLINGUAL [Concomitant]
     Active Substance: NITROGLYCERIN
     Dosage: SPRAY, METERED-DOSE (PUMP)
  23. NORVASC [Concomitant]
     Active Substance: AMLODIPINE BESYLATE
  24. PANTOPRAZOLE SODIUM [Concomitant]
     Active Substance: PANTOPRAZOLE SODIUM
  25. POLYETHYLENE GLYCOLS [Concomitant]
     Active Substance: POLYETHYLENE GLYCOLS
  26. SENOKOT [Concomitant]
     Active Substance: SENNOSIDES
  27. VENTOLIN [Concomitant]
     Active Substance: ALBUTEROL SULFATE

REACTIONS (1)
  - Upper gastrointestinal haemorrhage [Recovered/Resolved]
